FAERS Safety Report 8578986-3 (Version None)
Quarter: 2012Q3

REPORT INFORMATION
  Report Type: 
  Country: None (occurrence: None)
  Receive Date: 20120808
  Receipt Date: 20120801
  Transmission Date: 20120928
  Serious: Yes (Other)
  Sender: FDA-Public Use
  Company Number: AU-PFIZER INC-2012186248

PATIENT
  Sex: Male

DRUGS (5)
  1. GABAPENTIN [Suspect]
     Indication: INTERNAL INJURY
  2. OXYCODONE HCL [Suspect]
     Indication: BACK INJURY
  3. GABAPENTIN [Suspect]
     Indication: BACK INJURY
  4. CLONAZEPAM [Suspect]
  5. OXYCODONE HCL [Suspect]
     Indication: INTERNAL INJURY

REACTIONS (5)
  - NIGHTMARE [None]
  - DRUG DEPENDENCE [None]
  - INTENTIONAL DRUG MISUSE [None]
  - FEELING ABNORMAL [None]
  - DRUG INEFFECTIVE [None]
